FAERS Safety Report 5673787-8 (Version None)
Quarter: 2008Q1

REPORT INFORMATION
  Report Type: 
  Country: None (occurrence: None)
  Receive Date: 20080319
  Receipt Date: 20080312
  Transmission Date: 20080703
  Serious: Yes (Other)
  Sender: FDA-Public Use
  Company Number: US-ALLERGAN-0801759US

PATIENT
  Sex: Female

DRUGS (5)
  1. BOTOX COSMETIC [Suspect]
     Indication: SKIN WRINKLING
     Dosage: 28 UNITS, SINGLE
     Route: 030
     Dates: start: 20080107, end: 20080107
  2. RADIESSE [Concomitant]
     Indication: DRUG USE FOR UNKNOWN INDICATION
     Dates: start: 20080107
  3. ESTROGEN NOS [Concomitant]
  4. TESTOSTERONE [Concomitant]
  5. LEVOXYL [Concomitant]

REACTIONS (17)
  - ARTHRALGIA [None]
  - BRONCHITIS [None]
  - DIZZINESS [None]
  - DYSPNOEA [None]
  - EPISTAXIS [None]
  - HEADACHE [None]
  - JAW DISORDER [None]
  - NAUSEA [None]
  - NIGHT SWEATS [None]
  - PNEUMONIA [None]
  - PYREXIA [None]
  - RASH [None]
  - SINUSITIS [None]
  - SWELLING FACE [None]
  - SYNCOPE [None]
  - VOMITING [None]
  - WEIGHT DECREASED [None]
